FAERS Safety Report 8771764 (Version 1)
Quarter: 2012Q4

REPORT INFORMATION
  Report Type: 
  Country: NL (occurrence: NL)
  Receive Date: 20120830
  Receipt Date: 20120830
  Transmission Date: 20130627
  Serious: Yes (Hospitalization, Other)
  Sender: FDA-Public Use
  Company Number: NL-ELI_LILLY_AND_COMPANY-NL201208008614

PATIENT
  Sex: Female
  Weight: 109 kg

DRUGS (16)
  1. FORSTEO [Suspect]
     Indication: OSTEOPOROSIS
     Dosage: 20 ug, qd
     Route: 058
     Dates: start: 20120322
  2. FENTANYL [Concomitant]
     Indication: PAIN
     Dosage: 50 mg, other
     Route: 062
     Dates: start: 201201
  3. ZOPLICONE [Concomitant]
     Indication: INSOMNIA
     Dosage: 7.5 mg, qd
     Route: 048
  4. TRIAMTEREEN [Concomitant]
     Indication: DIURETIC THERAPY
     Dosage: 50 mg, qd
     Route: 048
     Dates: start: 201111
  5. SPIRONOLACTON [Concomitant]
     Indication: DIURETIC THERAPY
     Dosage: 25 mg, qd
     Route: 048
  6. PREDNISON [Concomitant]
     Indication: FIBROMYALGIA
     Dosage: 5 mg, bid
     Route: 048
     Dates: start: 200906
  7. PANTOPRAZOL [Concomitant]
     Indication: PROPHYLAXIS
     Dosage: 80 mg, qd
     Dates: start: 2009
  8. NEVANAC [Concomitant]
     Indication: DRY EYE
     Dosage: 1 DF, UNK
     Route: 047
     Dates: start: 201112
  9. FUROSEMIDE [Concomitant]
     Indication: DIURETIC THERAPY
     Dosage: 40 mg, qd
     Route: 048
     Dates: start: 2010
  10. FOSINOPRIL [Concomitant]
     Indication: DIURETIC THERAPY
     Dosage: 20 mg, qd
     Route: 048
     Dates: start: 2010
  11. ELTROXIN [Concomitant]
     Indication: THYROID DISORDER
     Dosage: 100 mg, qd
     Route: 048
     Dates: start: 1966
  12. ELTROXIN [Concomitant]
     Dosage: 50 mg, qd
     Route: 048
     Dates: start: 1966
  13. CALCI CHEW [Concomitant]
     Indication: OSTEOPOROSIS
     Dosage: 1000 mg, qd
     Route: 048
  14. ATORVASTAN [Concomitant]
     Indication: BLOOD CHOLESTEROL INCREASED
     Dosage: 20 mg, qd
     Route: 048
  15. LACTULOSE [Concomitant]
     Indication: CONSTIPATION
     Dosage: UNK UNK, qd
     Route: 048
     Dates: start: 201202
  16. ACETYLSALICYLIC ACID [Concomitant]
     Dosage: 80 mg, qd
     Route: 048
     Dates: start: 201011

REACTIONS (2)
  - Gastric cancer [Not Recovered/Not Resolved]
  - Hospitalisation [Unknown]
